FAERS Safety Report 4606604-5 (Version None)
Quarter: 2005Q2

REPORT INFORMATION
  Report Type: 
  Country: None (occurrence: None)
  Receive Date: 20050223
  Receipt Date: 20040430
  Transmission Date: 20051028
  Serious: Yes (Other)
  Sender: FDA-Public Use
  Company Number: WAES 0405USA00008

PATIENT
  Age: 54 Year
  Sex: Male

DRUGS (1)
  1. ZOCOR [Suspect]
     Dosage: 40 MG/DAILY/PO
     Route: 048
     Dates: end: 20040419

REACTIONS (1)
  - BLOOD CREATINE PHOSPHOKINASE INCREASED [None]
